FAERS Safety Report 6998050-4 (Version None)
Quarter: 2010Q3

REPORT INFORMATION
  Report Type: 
  Country: None (occurrence: None)
  Receive Date: 20100920
  Receipt Date: 20100512
  Transmission Date: 20110219
  Serious: No
  Sender: FDA-Public Use
  Company Number: US-ASTRAZENECA-2010SE21785

PATIENT
  Sex: Female

DRUGS (2)
  1. SEROQUEL XR [Suspect]
     Dosage: 150 MG TO 300 MG DAILY
     Route: 048
  2. DEPAKOTE [Concomitant]

REACTIONS (2)
  - PAIN IN EXTREMITY [None]
  - RESTLESS LEGS SYNDROME [None]
